FAERS Safety Report 4373056-2 (Version None)
Quarter: 2004Q2

REPORT INFORMATION
  Report Type: 
  Country: None (occurrence: None)
  Receive Date: 20040603
  Receipt Date: 20040517
  Transmission Date: 20050107
  Serious: Yes (Death)
  Sender: FDA-Public Use
  Company Number: USA040258666

PATIENT
  Age: 65 Year
  Sex: Female

DRUGS (6)
  1. EVISTA [Suspect]
     Indication: OSTEOPOROSIS
     Dosage: 60 MG/1 DAY
     Dates: start: 20001220
  2. COMBIVENT [Concomitant]
  3. PREDNISONE [Concomitant]
  4. METOPROLOL TARTRATE [Concomitant]
  5. OXYCONTIN [Concomitant]
  6. LIPITOR [Concomitant]

REACTIONS (1)
  - SUDDEN CARDIAC DEATH [None]
